FAERS Safety Report 8562917 (Version 3)
Quarter: 2012Q4

REPORT INFORMATION
  Report Type: Report from Study
  Country: AU (occurrence: AU)
  Receive Date: 20120515
  Receipt Date: 20121211
  Transmission Date: 20130627
  Serious: Yes (Death, Other)
  Sender: FDA-Public Use
  Company Number: AU-ROCHE-1068545

PATIENT
  Sex: Female

DRUGS (6)
  1. METHOXY POLYETHYLENE GLYCOL-EPOETIN BETA [Suspect]
     Indication: NEPHROGENIC ANAEMIA
     Route: 058
     Dates: start: 20111220, end: 20120321
  2. METHOXY POLYETHYLENE GLYCOL-EPOETIN BETA [Suspect]
     Indication: NEPHROGENIC ANAEMIA
  3. ADVENTAN [Concomitant]
  4. LASIX [Concomitant]
  5. NORVASC [Concomitant]
  6. ZOCOR [Concomitant]

REACTIONS (8)
  - Nephropathy [Fatal]
  - Renal failure chronic [Fatal]
  - Delirium [Unknown]
  - Fall [Unknown]
  - Hypercalcaemia [Unknown]
  - Clavicle fracture [Unknown]
  - Blood potassium increased [Unknown]
  - Blood creatinine increased [Unknown]
